FAERS Safety Report 5861481-X (Version None)
Quarter: 2008Q3

REPORT INFORMATION
  Report Type: 
  Country: None (occurrence: None)
  Receive Date: 20080827
  Receipt Date: 20080519
  Transmission Date: 20090109
  Serious: No
  Sender: FDA-Public Use
  Company Number: US-ABBOTT-08P-163-0452426-00

PATIENT
  Sex: Male
  Weight: 99.88 kg

DRUGS (10)
  1. COATED PDS [Suspect]
     Indication: BLOOD CHOLESTEROL INCREASED
     Route: 048
     Dates: start: 20080517, end: 20080517
  2. TARKA [Concomitant]
     Indication: HYPERTENSION
     Route: 048
  3. OMEPRAZOLE [Concomitant]
     Indication: GASTROOESOPHAGEAL REFLUX DISEASE
     Route: 048
  4. METOPROLOL SUCCINATE [Concomitant]
     Indication: HYPERTENSION
     Route: 048
  5. EZETIMIBE [Concomitant]
     Indication: BLOOD CHOLESTEROL INCREASED
     Route: 048
  6. DOXASOSIN [Concomitant]
     Indication: PROSTATOMEGALY
     Route: 048
  7. FIBER [Concomitant]
     Indication: DRUG USE FOR UNKNOWN INDICATION
     Route: 048
  8. FLAX SEED [Concomitant]
     Indication: DRUG USE FOR UNKNOWN INDICATION
     Route: 048
  9. ZINC [Concomitant]
     Indication: DRUG USE FOR UNKNOWN INDICATION
     Route: 048
  10. ACETYLSALICYLIC ACID SRT [Concomitant]
     Indication: DRUG USE FOR UNKNOWN INDICATION
     Route: 048

REACTIONS (4)
  - BURNING SENSATION [None]
  - PARAESTHESIA [None]
  - SENSORY DISTURBANCE [None]
  - URINE OUTPUT DECREASED [None]
